FAERS Safety Report 5950956-0 (Version None)
Quarter: 2008Q4

REPORT INFORMATION
  Report Type: 
  Country: None (occurrence: None)
  Receive Date: 20081112
  Receipt Date: 20081031
  Transmission Date: 20090506
  Serious: Yes (Other)
  Sender: FDA-Public Use
  Company Number: US-PFIZER INC-2008094279

PATIENT
  Sex: Female

DRUGS (3)
  1. REVATIO [Suspect]
  2. LASIX [Suspect]
  3. ALL OTHER THERAPEUTIC PRODUCTS [Suspect]

REACTIONS (7)
  - ANAEMIA [None]
  - CATHETERISATION CARDIAC ABNORMAL [None]
  - FIBROMYALGIA [None]
  - HYPOKALAEMIA [None]
  - OSTEOARTHRITIS [None]
  - RENAL DISORDER [None]
  - RHEUMATOID ARTHRITIS [None]
